FAERS Safety Report 9671858 (Version 2)
Quarter: 2013Q4

REPORT INFORMATION
  Report Type: Spontaneous
  Country: IT (occurrence: IT)
  Receive Date: 20131106
  Receipt Date: 20131111
  Transmission Date: 20140711
  Serious: Yes (Other)
  Sender: FDA-Public Use
  Company Number: IT-TEVA-442429ISR

PATIENT
  Age: 62 Year
  Sex: Female

DRUGS (4)
  1. CISPLATINO TEVA ITALIA [Suspect]
     Indication: BILE DUCT CANCER
     Dosage: 53 MILLIGRAM DAILY; CONCENTRATE FOR SOLUTION FOR INFUSION
     Route: 042
     Dates: start: 20130702, end: 20131029
  2. ONDASETRON KABI [Concomitant]
     Dosage: 8 MILLIGRAM DAILY;
     Route: 042
  3. DESAMETASONE FOSFATO HOSPIRA 8MG/2ML [Concomitant]
     Dosage: 8 MILLIGRAM DAILY;
     Route: 042
  4. ZANTAC [Concomitant]
     Dosage: 50 MILLIGRAM DAILY;
     Route: 042

REACTIONS (2)
  - Laryngeal stenosis [Recovered/Resolved]
  - Rash [Recovered/Resolved]
